FAERS Safety Report 26176651 (Version 1)
Quarter: 2025Q4

REPORT INFORMATION
  Report Type: Spontaneous
  Country: US (occurrence: US)
  Receive Date: 20251218
  Receipt Date: 20251218
  Transmission Date: 20260117
  Serious: Yes (Other)
  Sender: NOVO NORDISK
  Company Number: US-NOVOPROD-1584768

PATIENT
  Age: 82 Year
  Sex: Male

DRUGS (2)
  1. OZEMPIC [Suspect]
     Active Substance: SEMAGLUTIDE
     Indication: Renal disorder
     Dosage: 0.50 MG, QW
  2. OZEMPIC [Suspect]
     Active Substance: SEMAGLUTIDE
     Indication: Type 2 diabetes mellitus
     Dosage: 0.25 MG
     Route: 058
     Dates: start: 20251110

REACTIONS (5)
  - Visual impairment [Not Recovered/Not Resolved]
  - Weight increased [Unknown]
  - Product dose omission issue [Unknown]
  - Incorrect dose administered by product [Unknown]
  - Product confusion [Unknown]

NARRATIVE: CASE EVENT DATE: 20251101
